FAERS Safety Report 19479533 (Version 1)
Quarter: 2021Q3

REPORT INFORMATION
  Report Type: Spontaneous
  Country: US (occurrence: US)
  Receive Date: 20210701
  Receipt Date: 20210701
  Transmission Date: 20211014
  Serious: No
  Sender: FDA-Public Use
  Company Number: US-JNJFOC-20210652998

PATIENT
  Age: 7 Decade
  Sex: Female

DRUGS (1)
  1. ZYRTEC [Suspect]
     Active Substance: CETIRIZINE HYDROCHLORIDE
     Indication: HYPERSENSITIVITY
     Dosage: ?1 TABLET BEFORE BEDTIME ? JUST ONCE A DAY BEFORE BEDTIME
     Route: 065
     Dates: start: 2020

REACTIONS (1)
  - Somnolence [Unknown]
